FAERS Safety Report 23569026 (Version 1)
Quarter: 2024Q1

REPORT INFORMATION
  Report Type: Report from Study
  Country: US (occurrence: US)
  Receive Date: 20240227
  Receipt Date: 20240227
  Transmission Date: 20240410
  Serious: No
  Sender: FDA-Public Use
  Company Number: US-ORG100014127-2023001056

PATIENT
  Age: 69 Year
  Sex: Female

DRUGS (1)
  1. METOPIRONE [Suspect]
     Active Substance: METYRAPONE
     Indication: Ectopic ACTH syndrome
     Dosage: TAKES 2 CAPSULES 4 TIMES DAILY
     Route: 048
     Dates: start: 20230429

REACTIONS (2)
  - Taste disorder [Unknown]
  - Off label use [Unknown]
